FAERS Safety Report 4505272-0 (Version None)
Quarter: 2004Q4

REPORT INFORMATION
  Report Type: 
  Country: None (occurrence: None)
  Receive Date: 20041015
  Receipt Date: 20040527
  Transmission Date: 20050328
  Serious: Yes (Other)
  Sender: FDA-Public Use
  Company Number: 2004035950

PATIENT
  Age: 39 Year
  Sex: Female

DRUGS (9)
  1. NEURONTIN [Suspect]
     Indication: PAIN
     Dosage: ORAL
     Route: 048
     Dates: start: 20000101
  2. TIZANIDINE HCL [Concomitant]
  3. VALDECOXIB [Concomitant]
  4. BUPROPION HYDROCHLORIDE [Concomitant]
  5. PROPACET 100 [Concomitant]
  6. TRAMADOL HCL [Concomitant]
  7. AMITRIPTYLINE HCL [Concomitant]
  8. VICODIN [Concomitant]
  9. ZOLPIDEM TARTRATE [Concomitant]

REACTIONS (4)
  - DIZZINESS [None]
  - JUDGEMENT IMPAIRED [None]
  - SOMNOLENCE [None]
  - WEIGHT INCREASED [None]
